FAERS Safety Report 16771047 (Version 3)
Quarter: 2019Q4

REPORT INFORMATION
  Report Type: Spontaneous
  Country: BR (occurrence: BR)
  Receive Date: 20190904
  Receipt Date: 20191010
  Transmission Date: 20200122
  Serious: Yes (Hospitalization, Other)
  Sender: FDA-Public Use
  Company Number: BR-SA-2019SA234613

PATIENT
  Sex: Female
  Weight: 27 kg

DRUGS (4)
  1. INSULIN LISPRO [Suspect]
     Active Substance: INSULIN LISPRO
     Dosage: 2 U, UNK
     Route: 065
  2. INSULIN LISPRO [Suspect]
     Active Substance: INSULIN LISPRO
     Dosage: 1 U, HS
     Route: 065
  3. LANTUS [Suspect]
     Active Substance: INSULIN GLARGINE
     Indication: TYPE 1 DIABETES MELLITUS
     Dosage: 20 IU, QD
     Route: 065
     Dates: start: 2016
  4. INSULIN LISPRO [Suspect]
     Active Substance: INSULIN LISPRO
     Dosage: 6 X DAILY
     Route: 065

REACTIONS (19)
  - Hospitalisation [Unknown]
  - Wrong technique in device usage process [Unknown]
  - Ketoacidosis [Unknown]
  - Pneumonia [Unknown]
  - Hypoglycaemia [Unknown]
  - Device breakage [Unknown]
  - Weight decreased [Unknown]
  - Vomiting [Unknown]
  - Immunodeficiency [Not Recovered/Not Resolved]
  - Malaise [Unknown]
  - Pain [Unknown]
  - Incorrect dose administered by device [Unknown]
  - Injection site pain [Unknown]
  - Dehydration [Unknown]
  - Anxiety [Unknown]
  - Blood glucose increased [Recovered/Resolved]
  - Blood glucose increased [Unknown]
  - Vomiting [Unknown]
  - Diabetes mellitus inadequate control [Unknown]

NARRATIVE: CASE EVENT DATE: 2019
